FAERS Safety Report 9766612 (Version 1)
Quarter: 2013Q4

REPORT INFORMATION
  Report Type: Spontaneous
  Country: US (occurrence: US)
  Receive Date: 20131217
  Receipt Date: 20131217
  Transmission Date: 20140711
  Serious: No
  Sender: FDA-Public Use
  Company Number: US-BIOGENIDEC-2013BI119643

PATIENT
  Sex: Female

DRUGS (2)
  1. TECFIDERA [Suspect]
     Indication: MULTIPLE SCLEROSIS
     Route: 048
     Dates: start: 20130503
  2. AMPYRA [Concomitant]
     Indication: GAIT DISTURBANCE

REACTIONS (3)
  - Fall [Recovered/Resolved]
  - Memory impairment [Not Recovered/Not Resolved]
  - Multiple sclerosis relapse [Recovered/Resolved]
